FAERS Safety Report 6868735-9 (Version None)
Quarter: 2010Q3

REPORT INFORMATION
  Report Type: 
  Country: None (occurrence: None)
  Receive Date: 20100722
  Receipt Date: 20080612
  Transmission Date: 20110219
  Serious: No
  Sender: FDA-Public Use
  Company Number: US-PFIZER INC-2008050154

PATIENT
  Sex: Female
  Weight: 90.9 kg

DRUGS (7)
  1. CHANTIX [Suspect]
     Indication: SMOKING CESSATION THERAPY
     Dates: start: 20080301
  2. BENAZEPRIL HYDROCHLORIDE [Concomitant]
  3. METFORMIN [Concomitant]
  4. ADVAIR DISKUS 100/50 [Concomitant]
  5. PROVENTIL GENTLEHALER [Concomitant]
  6. GLYBURIDE [Concomitant]
  7. DICYCLOMINE [Concomitant]

REACTIONS (1)
  - ABDOMINAL DISCOMFORT [None]
